FAERS Safety Report 9039064 (Version 2)
Quarter: 2013Q3

REPORT INFORMATION
  Report Type: Spontaneous
  Country: US (occurrence: US)
  Receive Date: 20130129
  Receipt Date: 20130702
  Transmission Date: 20140515
  Serious: Yes (Hospitalization, Other)
  Sender: FDA-Public Use
  Company Number: US-009507513-1301USA013273

PATIENT
  Sex: Female
  Weight: 87.98 kg

DRUGS (1)
  1. NUVARING [Suspect]
     Indication: CONTRACEPTION
     Dosage: UNK
     Route: 067
     Dates: start: 20060414, end: 20080420

REACTIONS (9)
  - Mammoplasty [Unknown]
  - Deep vein thrombosis [Unknown]
  - Musculoskeletal pain [Unknown]
  - Bunion operation [Unknown]
  - Road traffic accident [Unknown]
  - Neck pain [Unknown]
  - Anaemia [Unknown]
  - Device expulsion [Unknown]
  - Coagulopathy [Unknown]
